FAERS Safety Report 8206627-3 (Version None)
Quarter: 2012Q1

REPORT INFORMATION
  Report Type: 
  Country: None (occurrence: None)
  Receive Date: 20120314
  Receipt Date: 20120305
  Transmission Date: 20120608
  Serious: Yes (Hospitalization)
  Sender: FDA-Public Use
  Company Number: US-BIOGENIDEC-2011BI021481

PATIENT
  Age: 65 Year
  Sex: Female

DRUGS (2)
  1. TYSABRI [Suspect]
     Indication: MULTIPLE SCLEROSIS
     Route: 042
     Dates: start: 20110425, end: 20110601
  2. TYSABRI [Suspect]
     Route: 042
     Dates: start: 20111101, end: 20120101

REACTIONS (15)
  - APHAGIA [None]
  - CYSTITIS [None]
  - DIZZINESS [None]
  - DEHYDRATION [None]
  - URINARY TRACT INFECTION [None]
  - TRIGEMINAL NEURALGIA [None]
  - SYNCOPE [None]
  - DELIRIUM [None]
  - ASTHENIA [None]
  - WEIGHT DECREASED [None]
  - CLOSTRIDIAL INFECTION [None]
  - FALL [None]
  - VOMITING [None]
  - CHEST PAIN [None]
  - MALAISE [None]
